FAERS Safety Report 6330233-9 (Version None)
Quarter: 2009Q3

REPORT INFORMATION
  Report Type: 
  Country: None (occurrence: None)
  Receive Date: 20090826
  Receipt Date: 20090826
  Transmission Date: 20100115
  Serious: Yes (Hospitalization)
  Sender: FDA-Public Use
  Company Number: None

PATIENT
  Sex: Female
  Weight: 82 kg

DRUGS (5)
  1. IOPAMIDOL-300 [Suspect]
     Indication: COMPUTERISED TOMOGRAM
     Dosage: 150ML ONCE IV
     Route: 042
     Dates: start: 20080814, end: 20080814
  2. DOCUSTATE SODIUM [Concomitant]
  3. GABAPENTIN [Concomitant]
  4. NEPHROVITE [Concomitant]
  5. SEVELAMAR [Concomitant]

REACTIONS (5)
  - CONTRAST MEDIA REACTION [None]
  - DYSPHONIA [None]
  - HYPOTENSION [None]
  - PRURITUS [None]
  - PYREXIA [None]
